FAERS Safety Report 11047028 (Version 1)
Quarter: 2015Q2

REPORT INFORMATION
  Report Type: Spontaneous
  Country: US (occurrence: US)
  Receive Date: 20150420
  Receipt Date: 20150420
  Transmission Date: 20150821
  Serious: No
  Sender: FDA-Public Use
  Company Number: US-LEO PHARMA-232941

PATIENT
  Sex: Male

DRUGS (1)
  1. PICATO [Suspect]
     Active Substance: INGENOL MEBUTATE
     Indication: PRODUCT USED FOR UNKNOWN INDICATION

REACTIONS (7)
  - Application site scab [Unknown]
  - Product packaging quantity issue [Unknown]
  - Application site pain [Unknown]
  - Drug administered at inappropriate site [Unknown]
  - Application site pruritus [Unknown]
  - Product container issue [Unknown]
  - Application site erythema [Unknown]
